FAERS Safety Report 15641248 (Version 3)
Quarter: 2018Q4

REPORT INFORMATION
  Report Type: Spontaneous
  Country: HK (occurrence: HK)
  Receive Date: 20181120
  Receipt Date: 20181120
  Transmission Date: 20190205
  Serious: Yes (Other)
  Sender: FDA-Public Use
  Company Number: PHHY2018HK154455

PATIENT
  Age: 39 Year
  Sex: Female

DRUGS (3)
  1. CICLOSPORIN [Suspect]
     Active Substance: CYCLOSPORINE
     Indication: BEHCET^S SYNDROME
     Dosage: UNK
     Route: 065
     Dates: start: 201701
  2. PREDNISOLONE. [Suspect]
     Active Substance: PREDNISOLONE
     Indication: BEHCET^S SYNDROME
     Dosage: 50 MG, QD
     Route: 065
     Dates: start: 201701
  3. AZATHIOPRINE. [Suspect]
     Active Substance: AZATHIOPRINE
     Indication: BEHCET^S SYNDROME
     Route: 065

REACTIONS (4)
  - Myalgia [Unknown]
  - Product use in unapproved indication [Unknown]
  - Large intestinal ulcer [Unknown]
  - Myositis [Recovered/Resolved]
